FAERS Safety Report 19088210 (Version 4)
Quarter: 2021Q2

REPORT INFORMATION
  Report Type: Spontaneous
  Country: CA (occurrence: CA)
  Receive Date: 20210402
  Receipt Date: 20210506
  Transmission Date: 20210717
  Serious: Yes (Hospitalization, Other)
  Sender: FDA-Public Use
  Company Number: CA-PFIZER INC-2021345441

PATIENT
  Age: 56 Year
  Sex: Male

DRUGS (7)
  1. ATIVAN [Suspect]
     Active Substance: LORAZEPAM
     Dosage: 4 MG
     Route: 042
  2. EPINEPHRINE. [Suspect]
     Active Substance: EPINEPHRINE
     Dosage: UNK  (0.3)
     Route: 030
  3. DECADRON [Suspect]
     Active Substance: DEXAMETHASONE
     Dosage: 1 DF
  4. ATIVAN [Suspect]
     Active Substance: LORAZEPAM
     Dosage: 2 MG
     Route: 048
  5. BENADRYL [Suspect]
     Active Substance: DIPHENHYDRAMINE HYDROCHLORIDE
     Dosage: UNK
  6. PHENTOLAMINE [Suspect]
     Active Substance: PHENTOLAMINE
     Dosage: UNK
  7. NITROGLYCERIN. [Concomitant]
     Active Substance: NITROGLYCERIN
     Dosage: UNK (A SPRAY)

REACTIONS (8)
  - Condition aggravated [Unknown]
  - Ventricular extrasystoles [Unknown]
  - Sinus tachycardia [Unknown]
  - Electrocardiogram T wave inversion [Unknown]
  - Blood pressure increased [Unknown]
  - Drug ineffective [Unknown]
  - Tachycardia [Unknown]
  - Glomerular filtration rate decreased [Unknown]
